FAERS Safety Report 7119563-0 (Version None)
Quarter: 2010Q4

REPORT INFORMATION
  Report Type: 
  Country: None (occurrence: None)
  Receive Date: 20101123
  Receipt Date: 20101115
  Transmission Date: 20110411
  Serious: Yes (Other)
  Sender: FDA-Public Use
  Company Number: US-PFIZER INC-2010128032

PATIENT
  Age: 68 Year
  Sex: Male
  Weight: 98.866 kg

DRUGS (6)
  1. TOVIAZ [Suspect]
     Indication: HYPERTONIC BLADDER
     Dosage: 4 MG, UNK
     Dates: start: 20100909
  2. LIPITOR [Concomitant]
     Dosage: UNK
  3. DIOVAN HCT [Concomitant]
     Dosage: UNK
  4. FENOFIBRATE [Concomitant]
     Dosage: UNK
  5. PROPRANOLOL [Concomitant]
     Dosage: UNK
  6. AMLODIPINE BESYLATE [Concomitant]
     Dosage: UNK

REACTIONS (2)
  - CONSTIPATION [None]
  - URINARY RETENTION [None]
